FAERS Safety Report 17620607 (Version 2)
Quarter: 2020Q2

REPORT INFORMATION
  Report Type: Report from Study
  Country: CA (occurrence: CA)
  Receive Date: 20200403
  Receipt Date: 20200618
  Transmission Date: 20200713
  Serious: Yes (Hospitalization)
  Sender: FDA-Public Use
  Company Number: CA-AMGEN-CANNI2020035806

PATIENT
  Age: 49 Year
  Sex: Female

DRUGS (2)
  1. BOTOX [Concomitant]
     Active Substance: ONABOTULINUMTOXINA
     Indication: PRODUCT USED FOR UNKNOWN INDICATION
     Dosage: UNK, Q3MO
     Route: 065
  2. AIMOVIG [Suspect]
     Active Substance: ERENUMAB-AOOE
     Indication: MIGRAINE
     Dosage: 140 MG, QMO
     Route: 058
     Dates: start: 20190730

REACTIONS (7)
  - Fibula fracture [Unknown]
  - Head injury [Recovering/Resolving]
  - Road traffic accident [Unknown]
  - Humerus fracture [Unknown]
  - Tibia fracture [Unknown]
  - Fall [Unknown]
  - Headache [Unknown]

NARRATIVE: CASE EVENT DATE: 20200209
